FAERS Safety Report 24884079 (Version 1)
Quarter: 2025Q1

REPORT INFORMATION
  Report Type: Spontaneous
  Country: GB (occurrence: GB)
  Receive Date: 20250124
  Receipt Date: 20250124
  Transmission Date: 20250409
  Serious: Yes (Hospitalization, Other)
  Sender: TORRENT PHARMA INC.
  Company Number: None

PATIENT
  Age: 77 Year
  Sex: Male

DRUGS (1)
  1. LOSARTAN [Suspect]
     Active Substance: LOSARTAN
     Indication: Blood pressure measurement
     Route: 048
     Dates: start: 20140101, end: 20241201

REACTIONS (3)
  - Blister [Recovered/Resolved with Sequelae]
  - Renal failure [Not Recovered/Not Resolved]
  - Skin weeping [Unknown]

NARRATIVE: CASE EVENT DATE: 20240901
